FAERS Safety Report 4318109-X (Version None)
Quarter: 2004Q1

REPORT INFORMATION
  Report Type: 
  Country: None (occurrence: None)
  Receive Date: 20040315
  Receipt Date: 20040308
  Transmission Date: 20041129
  Serious: No
  Sender: FDA-Public Use
  Company Number: 2004UW01678

PATIENT
  Age: 56 Year
  Sex: Male
  Weight: 66.6788 kg

DRUGS (5)
  1. CRESTOR [Suspect]
     Dosage: 10 MG PO
     Route: 048
     Dates: start: 20031205
  2. AVANDIA [Concomitant]
  3. GLUCOVANCE [Concomitant]
  4. HYDROCHLOROTHIAZIDE [Concomitant]
  5. LOTREL [Concomitant]

REACTIONS (1)
  - HIGH DENSITY LIPOPROTEIN DECREASED [None]
